FAERS Safety Report 8963990 (Version 1)
Quarter: 2012Q4

REPORT INFORMATION
  Report Type: Report from Study
  Country: BR (occurrence: BR)
  Receive Date: 20121214
  Receipt Date: 20121214
  Transmission Date: 20130627
  Serious: Yes (Other)
  Sender: FDA-Public Use
  Company Number: BR-AMGEN-BRACT2012073453

PATIENT
  Age: 47 Year
  Sex: Female
  Weight: 56 kg

DRUGS (6)
  1. ETANERCEPT [Suspect]
     Indication: RHEUMATOID ARTHRITIS
     Dosage: 25 mg, 2 times/wk
     Dates: start: 200807, end: 200809
  2. ETANERCEPT [Suspect]
     Dosage: 25 mg, 2x/week
     Route: 058
     Dates: start: 200810
  3. ETANERCEPT [Suspect]
     Dosage: 25 mg, 2 times/wk
     Route: 058
     Dates: start: 201010, end: 201206
  4. IBUPROFEN [Concomitant]
     Dosage: 300 mg, UNK
     Dates: start: 2004
  5. PREDNISONE [Concomitant]
     Dosage: 5 mg, UNK
     Dates: start: 2004
  6. METHOTREXATE [Concomitant]
     Dosage: UNK
     Dates: start: 2010, end: 201112

REACTIONS (4)
  - Asthmatic crisis [Recovered/Resolved]
  - Injection site pruritus [Recovering/Resolving]
  - Injection site erythema [Recovering/Resolving]
  - Injection site swelling [Recovering/Resolving]
